FAERS Safety Report 13891409 (Version 4)
Quarter: 2017Q4

REPORT INFORMATION
  Report Type: Other
  Country: US (occurrence: US)
  Receive Date: 20170822
  Receipt Date: 20171121
  Transmission Date: 20180320
  Serious: Yes (Disabling, Other)
  Sender: FDA-Public Use
  Company Number: US-ACORDA-ACO_136203_2017

PATIENT
  Age: 44 Year
  Sex: Female
  Weight: 78.46 kg

DRUGS (58)
  1. VALSARTAN AND HYDROCHLOROTHIAZIDE (DIOVAN) [Concomitant]
     Indication: PRODUCT USED FOR UNKNOWN INDICATION
     Dosage: 160-25 MG, QD
     Route: 048
  2. METHENAMINE [Concomitant]
     Active Substance: METHENAMINE
     Indication: PRODUCT USED FOR UNKNOWN INDICATION
     Dosage: UNK
     Route: 065
     Dates: start: 20170331
  3. HYDROCO/APAP [Concomitant]
     Active Substance: ACETAMINOPHEN\HYDROCODONE
     Indication: PRODUCT USED FOR UNKNOWN INDICATION
     Dosage: 5-500MG, UNK
     Route: 065
     Dates: start: 20060418, end: 20170404
  4. HYDROCO/APAP [Concomitant]
     Active Substance: ACETAMINOPHEN\HYDROCODONE
     Dosage: 7.5-500 MG, UNK
     Dates: start: 20090202, end: 20091012
  5. VITAMIN D [Concomitant]
     Active Substance: CHOLECALCIFEROL
     Dosage: 50000 IU, UNK
     Route: 065
     Dates: start: 20080830, end: 20120811
  6. AMPYRA [Suspect]
     Active Substance: DALFAMPRIDINE
     Indication: MULTIPLE SCLEROSIS
     Dosage: 10 MG, BID (Q 12 HRS)
     Route: 048
     Dates: start: 20110218
  7. AMPYRA [Suspect]
     Active Substance: DALFAMPRIDINE
     Dosage: 10 MG, BID
     Route: 048
  8. FISH OIL [Concomitant]
     Active Substance: FISH OIL
     Indication: PRODUCT USED FOR UNKNOWN INDICATION
     Dosage: 1000 MG, UNK
     Route: 065
     Dates: start: 20160815
  9. LOVASTATIN. [Concomitant]
     Active Substance: LOVASTATIN
     Dosage: 10 MG, UNK
     Route: 065
     Dates: start: 20080419
  10. MULTI-VITAMIN [Concomitant]
     Active Substance: .ALPHA.-TOCOPHEROL ACETATE, DL-\ASCORBIC ACID\CYANOCOBALAMIN\FLUORIDE ION\FOLIC ACID\NIACIN\PYRIDOXINE\RIBOFLAVIN\THIAMINE\VITAMIN A\VITAMIN D
     Dosage: UNK
     Dates: start: 20080419
  11. HYDROCODONE [Concomitant]
     Active Substance: HYDROCODONE
     Indication: PRODUCT USED FOR UNKNOWN INDICATION
     Dosage: UNK
     Route: 065
  12. AMPYRA [Suspect]
     Active Substance: DALFAMPRIDINE
     Dosage: 10 MG, Q 12 HRS
     Route: 048
  13. NAPROXEN. [Concomitant]
     Active Substance: NAPROXEN
     Indication: PRODUCT USED FOR UNKNOWN INDICATION
     Dosage: 500 MG, UNK
     Route: 065
     Dates: start: 20080419, end: 20170613
  14. METFORMIN XR 24H [Concomitant]
     Indication: PRODUCT USED FOR UNKNOWN INDICATION
     Dosage: 500 MG, 2 TABS BID
     Route: 048
     Dates: start: 20101221
  15. VICTOZA [Concomitant]
     Active Substance: LIRAGLUTIDE
     Dosage: 1.2 MG, QD
     Route: 058
  16. VICODIN [Concomitant]
     Active Substance: ACETAMINOPHEN\HYDROCODONE BITARTRATE
     Indication: PRODUCT USED FOR UNKNOWN INDICATION
     Dosage: UNK
     Route: 065
  17. ATENOLOL. [Concomitant]
     Active Substance: ATENOLOL
     Indication: PRODUCT USED FOR UNKNOWN INDICATION
     Dosage: 50 MG, QD
     Route: 048
     Dates: start: 20080419
  18. VITAMIN B12 [Concomitant]
     Active Substance: CYANOCOBALAMIN
     Dosage: 1000 MCG, QD
     Route: 048
     Dates: start: 20141224, end: 20161026
  19. VITAMIN D3 [Concomitant]
     Active Substance: CHOLECALCIFEROL
     Indication: PRODUCT USED FOR UNKNOWN INDICATION
     Dosage: 1000 UNK, UNK
     Route: 065
     Dates: start: 20080419
  20. NITROFURANTOIN. [Concomitant]
     Active Substance: NITROFURANTOIN
     Indication: PRODUCT USED FOR UNKNOWN INDICATION
     Dosage: 100 MG, UNK
     Route: 065
     Dates: start: 20070808
  21. MULTI-VITAMIN [Concomitant]
     Active Substance: .ALPHA.-TOCOPHEROL ACETATE, DL-\ASCORBIC ACID\CYANOCOBALAMIN\FLUORIDE ION\FOLIC ACID\NIACIN\PYRIDOXINE\RIBOFLAVIN\THIAMINE\VITAMIN A\VITAMIN D
     Indication: PRODUCT USED FOR UNKNOWN INDICATION
     Dosage: 1 TAB DAILY, (QD)
     Route: 048
     Dates: start: 20101221, end: 20161026
  22. VICTOZA [Concomitant]
     Active Substance: LIRAGLUTIDE
     Indication: PRODUCT USED FOR UNKNOWN INDICATION
     Dosage: 0.6 MG, QD
     Route: 058
     Dates: start: 20161115
  23. ZOLOFT [Concomitant]
     Active Substance: SERTRALINE HYDROCHLORIDE
     Dosage: 25 MG, UNK
     Route: 065
     Dates: start: 20170505
  24. DIOVAN [Concomitant]
     Active Substance: VALSARTAN
     Indication: PRODUCT USED FOR UNKNOWN INDICATION
     Dosage: 160 MG, HS
     Route: 048
     Dates: start: 20101221, end: 20160411
  25. DEXTROAMPHETAMINE. [Concomitant]
     Active Substance: DEXTROAMPHETAMINE
     Indication: PRODUCT USED FOR UNKNOWN INDICATION
     Dosage: 5 MG, UNK
     Route: 065
     Dates: start: 20080228, end: 20090108
  26. OYST-CAL [Concomitant]
     Indication: PRODUCT USED FOR UNKNOWN INDICATION
     Dosage: 600 MG, UNK
     Dates: start: 20080419
  27. BACLOFEN. [Concomitant]
     Active Substance: BACLOFEN
     Indication: PRODUCT USED FOR UNKNOWN INDICATION
     Dosage: 20 MG, UNK
     Route: 065
  28. BIOTIN [Concomitant]
     Active Substance: BIOTIN
     Dosage: 300 ??G, UNK
     Route: 065
     Dates: start: 20160815
  29. GABAPENTIN. [Concomitant]
     Active Substance: GABAPENTIN
     Indication: PRODUCT USED FOR UNKNOWN INDICATION
     Dosage: 300 MG, TID
     Route: 048
     Dates: start: 20141211
  30. LOVASTATIN. [Concomitant]
     Active Substance: LOVASTATIN
     Indication: PRODUCT USED FOR UNKNOWN INDICATION
     Dosage: 40 MG, HS
     Route: 048
     Dates: start: 20141211
  31. VITAMIN D [Concomitant]
     Active Substance: CHOLECALCIFEROL
     Indication: PRODUCT USED FOR UNKNOWN INDICATION
     Dosage: 50000 IU, WEEKLY
     Route: 048
     Dates: start: 20150824
  32. MODAFINIL. [Concomitant]
     Active Substance: MODAFINIL
     Indication: PRODUCT USED FOR UNKNOWN INDICATION
     Dosage: 200 MG,8 AM
     Route: 048
     Dates: start: 20170813
  33. MYRBETRIQ XR24H [Concomitant]
     Indication: PRODUCT USED FOR UNKNOWN INDICATION
     Dosage: 50 MG, QD
     Route: 048
     Dates: start: 20080418
  34. CHOLESTYRAMINE. [Concomitant]
     Active Substance: CHOLESTYRAMINE
     Indication: PRODUCT USED FOR UNKNOWN INDICATION
     Dosage: UNK
     Route: 065
     Dates: start: 20170818
  35. REFRESH TEARS 0/5% OPTH SOLN [Concomitant]
     Indication: DRY EYE
     Dosage: UNK, PRN FOR DRY EYES
     Route: 047
  36. CYMBALTA [Concomitant]
     Active Substance: DULOXETINE HYDROCHLORIDE
     Indication: PRODUCT USED FOR UNKNOWN INDICATION
     Dosage: 30 MG, UNK
     Route: 065
     Dates: start: 20170505
  37. AMPYRA [Suspect]
     Active Substance: DALFAMPRIDINE
     Dosage: 10 MG, BID
     Route: 048
  38. ZOLOFT [Concomitant]
     Active Substance: SERTRALINE HYDROCHLORIDE
     Indication: PRODUCT USED FOR UNKNOWN INDICATION
     Dosage: 100 MG, QD
     Route: 048
     Dates: start: 20141124
  39. PERCOCET [Concomitant]
     Active Substance: ACETAMINOPHEN\OXYCODONE HYDROCHLORIDE
     Indication: PRODUCT USED FOR UNKNOWN INDICATION
     Dosage: 5-325 MG, BID PRN
     Route: 048
  40. VESICARE [Concomitant]
     Active Substance: SOLIFENACIN SUCCINATE
     Indication: PRODUCT USED FOR UNKNOWN INDICATION
     Dosage: 10 MG, QD
     Route: 048
     Dates: start: 20160502, end: 20160815
  41. DIOVAN [Concomitant]
     Active Substance: VALSARTAN
     Dosage: 160 MG, UNK
     Route: 065
     Dates: start: 20060419
  42. AMPYRA [Suspect]
     Active Substance: DALFAMPRIDINE
     Dosage: 10 MG, BID
     Route: 048
  43. TAMSULOSIN [Concomitant]
     Active Substance: TAMSULOSIN
     Indication: PRODUCT USED FOR UNKNOWN INDICATION
     Dosage: 0.4 MG, UNK
     Route: 065
     Dates: start: 20110211
  44. BACLOFEN. [Concomitant]
     Active Substance: BACLOFEN
     Dosage: 10 MG, TID
     Route: 048
     Dates: start: 20060419
  45. AUBAGIO [Concomitant]
     Active Substance: TERIFLUNOMIDE
     Indication: PRODUCT USED FOR UNKNOWN INDICATION
     Dosage: 14 MG, QD
     Route: 048
     Dates: start: 20141211
  46. VITAMIN B12 [Concomitant]
     Active Substance: CYANOCOBALAMIN
     Indication: PRODUCT USED FOR UNKNOWN INDICATION
     Dosage: 1000 ??G, UNK
     Route: 065
     Dates: start: 20060419
  47. TRADJENTA [Concomitant]
     Active Substance: LINAGLIPTIN
     Indication: PRODUCT USED FOR UNKNOWN INDICATION
     Dosage: 5 MG, QD
     Route: 048
  48. CYANOCOBALAMIN. [Concomitant]
     Active Substance: CYANOCOBALAMIN
     Indication: PRODUCT USED FOR UNKNOWN INDICATION
     Dosage: 1000 MCG, WEEKLY
     Route: 058
  49. MYRBETRIQ XR24H [Concomitant]
     Dosage: 25 MG, UNK
     Route: 065
     Dates: start: 20170619
  50. DULOXETINE. [Concomitant]
     Active Substance: DULOXETINE
     Indication: PRODUCT USED FOR UNKNOWN INDICATION
     Dosage: 30 MG, QD
     Route: 048
     Dates: start: 20150824, end: 20151217
  51. BIOTIN [Concomitant]
     Active Substance: BIOTIN
     Indication: PRODUCT USED FOR UNKNOWN INDICATION
     Dosage: 10000 IU, QD
     Route: 048
  52. EXCEDRIN [Concomitant]
     Active Substance: ACETAMINOPHEN\ASPIRIN\CAFFEINE
     Indication: PRODUCT USED FOR UNKNOWN INDICATION
     Dosage: UNK
     Route: 065
     Dates: start: 20080419
  53. METFORMIN XR 24H [Concomitant]
     Dosage: 500 MG, UNK
     Route: 065
     Dates: start: 20080419
  54. VESICARE [Concomitant]
     Active Substance: SOLIFENACIN SUCCINATE
     Dosage: 5 MG, UNK
     Route: 065
     Dates: start: 20080418, end: 20160815
  55. MYRBETRIQ XR24H [Concomitant]
     Dosage: UNK
  56. RESTASIS 0.05% OPHTH EMUL [Concomitant]
     Indication: PRODUCT USED FOR UNKNOWN INDICATION
     Dosage: 1 DROP BOTH EYES MORNING AND NIGHT, BID
  57. DETROL LA [Concomitant]
     Active Substance: TOLTERODINE TARTRATE
     Indication: PRODUCT USED FOR UNKNOWN INDICATION
     Dosage: 4 MG, UNK
     Route: 065
     Dates: start: 20060419, end: 20180815
  58. ENABLEX [Concomitant]
     Active Substance: DARIFENACIN HYDROBROMIDE
     Indication: PRODUCT USED FOR UNKNOWN INDICATION
     Dosage: 15 MG, UNK
     Route: 065
     Dates: end: 20110211

REACTIONS (46)
  - Colitis microscopic [Unknown]
  - Condition aggravated [Recovering/Resolving]
  - Vitamin D deficiency [Unknown]
  - Neuropathy peripheral [Unknown]
  - Impaired healing [Unknown]
  - Metabolic syndrome [Unknown]
  - Intervertebral disc protrusion [Unknown]
  - Diabetes mellitus [Unknown]
  - Vitamin B complex deficiency [Unknown]
  - Peripheral coldness [Unknown]
  - Hypothyroidism [Unknown]
  - Memory impairment [Unknown]
  - Decreased appetite [Unknown]
  - Pupillary reflex impaired [Unknown]
  - Adhesion [Unknown]
  - Intestinal prolapse [Unknown]
  - Pain [Unknown]
  - Bladder disorder [Unknown]
  - Hyperlipidaemia [Unknown]
  - Burning sensation [Unknown]
  - Urinary tract infection [Unknown]
  - Fall [Not Recovered/Not Resolved]
  - Muscular weakness [Unknown]
  - Skin papilloma [Unknown]
  - Muscle spasms [Unknown]
  - Abdominal pain upper [Unknown]
  - Dysarthria [Unknown]
  - Fatigue [Unknown]
  - Paralysis [Unknown]
  - Breast mass [Unknown]
  - Astigmatism [Unknown]
  - Mobility decreased [Not Recovered/Not Resolved]
  - Hypoaesthesia [Unknown]
  - Nystagmus [Unknown]
  - Tremor [Unknown]
  - Ovarian cyst [Unknown]
  - Gait disturbance [Not Recovered/Not Resolved]
  - Musculoskeletal stiffness [Unknown]
  - Hyperkeratosis [Unknown]
  - Contusion [Unknown]
  - Uterine prolapse [Unknown]
  - Cataract [Unknown]
  - Limb injury [Unknown]
  - Diarrhoea [Unknown]
  - Sexual dysfunction [Unknown]
  - Arthralgia [Unknown]

NARRATIVE: CASE EVENT DATE: 20130218
